FAERS Safety Report 10145001 (Version 3)
Quarter: 2014Q2

REPORT INFORMATION
  Report Type: Spontaneous
  Country: AR (occurrence: AR)
  Receive Date: 20140501
  Receipt Date: 20140605
  Transmission Date: 20141212
  Serious: Yes (Other)
  Sender: FDA-Public Use
  Company Number: AR-AMGEN INC.-ARGSP2014031233

PATIENT
  Age: 58 Year
  Sex: Female

DRUGS (1)
  1. ENBREL [Suspect]
     Indication: RHEUMATOID ARTHRITIS
     Dosage: 50 MG, WEEKLY
     Route: 065
     Dates: start: 20090128

REACTIONS (4)
  - Skin ulcer [Recovered/Resolved]
  - Induration [Not Recovered/Not Resolved]
  - Injury [Not Recovered/Not Resolved]
  - Infected skin ulcer [Recovered/Resolved]
